FAERS Safety Report 10666795 (Version 1)
Quarter: 2014Q4

REPORT INFORMATION
  Report Type: Spontaneous
  Country: US (occurrence: None)
  Receive Date: 20141219
  Receipt Date: 20141219
  Transmission Date: 20150529
  Serious: Yes (Disabling)
  Sender: FDA-Public Use
  Company Number: None

PATIENT
  Age: 42 Year
  Sex: Male
  Weight: 83.92 kg

DRUGS (1)
  1. ALFUZOSIN [Suspect]
     Active Substance: ALFUZOSIN
     Indication: PROSTATITIS
     Dosage: 1 PILL AT BEDTIME TAKEN BY MOUTH
     Route: 048
     Dates: start: 20141112, end: 20141212

REACTIONS (6)
  - Pain [None]
  - General symptom [None]
  - Product quality issue [None]
  - Product substitution issue [None]
  - Drug ineffective [None]
  - Discomfort [None]

NARRATIVE: CASE EVENT DATE: 20141208
